FAERS Safety Report 19295592 (Version 2)
Quarter: 2021Q2

REPORT INFORMATION
  Report Type: Spontaneous
  Country: CO (occurrence: CO)
  Receive Date: 20210524
  Receipt Date: 20210630
  Transmission Date: 20210717
  Serious: Yes (Hospitalization, Other)
  Sender: FDA-Public Use
  Company Number: CO-PFIZER INC-2021536247

PATIENT
  Age: 63 Year
  Sex: Female

DRUGS (2)
  1. FULVESTRANT. [Concomitant]
     Active Substance: FULVESTRANT
  2. REAMPLA [Suspect]
     Active Substance: PALBOCICLIB
     Dosage: 125 MG
     Route: 048
     Dates: start: 201812

REACTIONS (5)
  - Vomiting [Unknown]
  - Pain [Not Recovered/Not Resolved]
  - Wound [Unknown]
  - Hernia [Recovered/Resolved]
  - Adnexa uteri mass [Recovering/Resolving]

NARRATIVE: CASE EVENT DATE: 20210504
